FAERS Safety Report 23230318 (Version 3)
Quarter: 2023Q4

REPORT INFORMATION
  Report Type: Spontaneous
  Country: US (occurrence: US)
  Receive Date: 20231127
  Receipt Date: 20231201
  Transmission Date: 20240109
  Serious: No
  Sender: FDA-Public Use
  Company Number: US-ABBVIE-5509979

PATIENT
  Age: 69 Year
  Sex: Female
  Weight: 49 kg

DRUGS (4)
  1. ALPHAGAN P [Suspect]
     Active Substance: BRIMONIDINE TARTRATE
     Indication: Glaucoma
     Dosage: FORM STRENGTH 1.5MG/ML
     Route: 047
     Dates: start: 20231109
  2. ALPHAGAN P [Suspect]
     Active Substance: BRIMONIDINE TARTRATE
     Indication: Intraocular pressure test abnormal
  3. METROGEL [Concomitant]
     Active Substance: METRONIDAZOLE
     Indication: Rosacea
  4. TYRVAYA [Concomitant]
     Active Substance: VARENICLINE TARTRATE
     Indication: Dry eye

REACTIONS (1)
  - Dry mouth [Recovering/Resolving]

NARRATIVE: CASE EVENT DATE: 20231109
